FAERS Safety Report 24837727 (Version 1)
Quarter: 2025Q1

REPORT INFORMATION
  Report Type: Spontaneous
  Country: US (occurrence: None)
  Receive Date: 20250112
  Receipt Date: 20250112
  Transmission Date: 20250409
  Serious: Yes (Other)
  Sender: FDA-CTU
  Company Number: None

PATIENT
  Age: 59 Year
  Sex: Female
  Weight: 75.15 kg

DRUGS (4)
  1. ZOLEDRONIC ACID [Suspect]
     Active Substance: ZOLEDRONIC ACID
     Indication: Osteoporosis
     Route: 042
     Dates: start: 20241211, end: 20241211
  2. LEXAPRO [Concomitant]
     Active Substance: ESCITALOPRAM OXALATE
  3. PRESERVISON AREDS 2 [Concomitant]
  4. DOCUSATE SODIUM [Concomitant]
     Active Substance: DOCUSATE SODIUM

REACTIONS (14)
  - Infusion related reaction [None]
  - Pain [None]
  - Back pain [None]
  - Malaise [None]
  - Pain in extremity [None]
  - Peripheral swelling [None]
  - Dysstasia [None]
  - Loss of personal independence in daily activities [None]
  - Joint swelling [None]
  - Pain in jaw [None]
  - Muscle tightness [None]
  - Impaired work ability [None]
  - Arthritis [None]
  - Patella fracture [None]

NARRATIVE: CASE EVENT DATE: 20241211
